FAERS Safety Report 6891329-6 (Version None)
Quarter: 2010Q3

REPORT INFORMATION
  Report Type: 
  Country: None (occurrence: None)
  Receive Date: 20100731
  Receipt Date: 20090730
  Transmission Date: 20110219
  Serious: No
  Sender: FDA-Public Use
  Company Number: US-PFIZER INC-2009250807

PATIENT
  Sex: Male
  Weight: 77.1 kg

DRUGS (5)
  1. LIPITOR [Suspect]
     Indication: BLOOD CHOLESTEROL INCREASED
     Dosage: 40 MG, 1X/DAY
     Route: 048
  2. XELODA [Concomitant]
     Dosage: UNK
     Route: 048
  3. WARFARIN SODIUM [Concomitant]
     Dosage: UNK
     Route: 048
  4. ACETYLSALICYLIC ACID [Concomitant]
     Dosage: 81 MG, UNK
     Route: 048
  5. ALTACE [Concomitant]
     Dosage: UNK
     Route: 048

REACTIONS (1)
  - MUSCLE DISORDER [None]
